FAERS Safety Report 5501477-0 (Version None)
Quarter: 2007Q4

REPORT INFORMATION
  Report Type: 
  Country: None (occurrence: None)
  Receive Date: 20071030
  Receipt Date: 20071022
  Transmission Date: 20080405
  Serious: Yes (Death)
  Sender: FDA-Public Use
  Company Number: US-JNJFOC-20071006101

PATIENT
  Age: 15 Month
  Sex: Female
  Weight: 11.79 kg

DRUGS (6)
  1. TYLENOL (CAPLET) [Suspect]
  2. TYLENOL (CAPLET) [Suspect]
     Indication: PYREXIA
  3. ASPIRIN [Suspect]
     Indication: DRUG USE FOR UNKNOWN INDICATION
     Dosage: 1-3 DOSES
  4. NOVAHISTINE [Suspect]
     Indication: RHINORRHOEA
     Route: 048
  5. GENTAMICIN [Concomitant]
     Dosage: INTRAVENOUSLY
  6. GENTAMICIN [Concomitant]
     Dosage: INTRAMUSCULAR

REACTIONS (5)
  - CROUP INFECTIOUS [None]
  - DELIRIUM [None]
  - DRUG INEFFECTIVE [None]
  - REYE'S SYNDROME [None]
  - TACHYCARDIA [None]
